FAERS Safety Report 16121211 (Version 6)
Quarter: 2020Q2

REPORT INFORMATION
  Report Type: Report from Study
  Country: US (occurrence: US)
  Receive Date: 20190327
  Receipt Date: 20200424
  Transmission Date: 20200713
  Serious: Yes (Hospitalization, Other)
  Sender: FDA-Public Use
  Company Number: PHEH2019US012461

PATIENT
  Age: 61 Year
  Sex: Female
  Weight: 51.7 kg

DRUGS (1)
  1. GILENYA [Suspect]
     Active Substance: FINGOLIMOD HYDROCHLORIDE
     Indication: MULTIPLE SCLEROSIS
     Dosage: 0.5 MG, QD
     Route: 048

REACTIONS (9)
  - Fall [Unknown]
  - Nephrolithiasis [Unknown]
  - Hip fracture [Unknown]
  - Spinal fracture [Unknown]
  - Liver function test abnormal [Unknown]
  - Liver abscess [Unknown]
  - Liver disorder [Recovering/Resolving]
  - Osteoporosis [Unknown]
  - Cough [Unknown]

NARRATIVE: CASE EVENT DATE: 202002
